FAERS Safety Report 4602968-7 (Version None)
Quarter: 2005Q1

REPORT INFORMATION
  Report Type: 
  Country: None (occurrence: None)
  Receive Date: 20050307
  Receipt Date: 20050218
  Transmission Date: 20050727
  Serious: No
  Sender: FDA-Public Use
  Company Number: 10344

PATIENT
  Age: 24 Month
  Sex: Female

DRUGS (9)
  1. METHOTREXATE [Suspect]
     Indication: ACUTE LYMPHOCYTIC LEUKAEMIA
     Dosage: 550 MG PER_CYCLE IV
     Route: 042
     Dates: start: 20041020, end: 20050101
  2. CYTARABINE [Suspect]
     Indication: ACUTE LYMPHOCYTIC LEUKAEMIA
     Dosage: 1700 MG PER_CYCLE IV
     Route: 042
     Dates: start: 20041215, end: 20050101
  3. ASPARAGINASE [Concomitant]
  4. VINCRISTINE [Concomitant]
  5. DEXAMETHASONE [Concomitant]
  6. AMPHOTERICIN B [Concomitant]
  7. CYCLOPHOSPHAMIDE [Concomitant]
  8. ETOPOSIDE [Concomitant]
  9. IDARUBICIN HCL [Concomitant]

REACTIONS (3)
  - GASTROINTESTINAL TOXICITY [None]
  - MUCOSAL INFLAMMATION [None]
  - THERAPY NON-RESPONDER [None]
